FAERS Safety Report 23443220 (Version 1)
Quarter: 2024Q1

REPORT INFORMATION
  Report Type: Spontaneous
  Country: US (occurrence: US)
  Receive Date: 20240125
  Receipt Date: 20240125
  Transmission Date: 20240410
  Serious: No
  Sender: FDA-Public Use
  Company Number: US-SA-SAC20240118000248

PATIENT
  Age: 17 Year
  Sex: Male

DRUGS (1)
  1. CEREZYME [Suspect]
     Active Substance: IMIGLUCERASE
     Dosage: 4000 U, QOW
     Route: 042

REACTIONS (1)
  - Intentional dose omission [Unknown]

NARRATIVE: CASE EVENT DATE: 20240115
